FAERS Safety Report 17992790 (Version 10)
Quarter: 2022Q4

REPORT INFORMATION
  Report Type: Report from Study
  Country: US (occurrence: US)
  Receive Date: 20200707
  Receipt Date: 20221202
  Transmission Date: 20230113
  Serious: Yes (Other)
  Sender: FDA-Public Use
  Company Number: NVSC2020US191987

PATIENT
  Sex: Female

DRUGS (1)
  1. COSENTYX [Suspect]
     Active Substance: SECUKINUMAB
     Indication: Product used for unknown indication
     Dosage: UNK
     Route: 065

REACTIONS (8)
  - Rheumatoid arthritis [Unknown]
  - Psoriatic arthropathy [Unknown]
  - Psoriasis [Unknown]
  - Pain [Unknown]
  - Movement disorder [Unknown]
  - Condition aggravated [Unknown]
  - Scab [Unknown]
  - Product complaint [Unknown]
